FAERS Safety Report 4393683-6 (Version None)
Quarter: 2004Q3

REPORT INFORMATION
  Report Type: 
  Country: None (occurrence: None)
  Receive Date: 20040709
  Receipt Date: 20040616
  Transmission Date: 20050211
  Serious: Yes (Other)
  Sender: FDA-Public Use
  Company Number: PHBS2004JP07934

PATIENT
  Age: 49 Year
  Sex: Male

DRUGS (6)
  1. CYCLOSPORINE [Suspect]
     Indication: RENAL TRANSPLANT
     Dosage: 6 MG/KG
     Route: 065
  2. CYCLOSPORINE [Suspect]
     Dosage: 12 MG/KG/D
     Route: 065
  3. SIMULECT [Concomitant]
     Indication: RENAL TRANSPLANT
     Route: 042
     Dates: start: 20030801
  4. MYCOPHENOLATE MOFETIL [Concomitant]
     Indication: RENAL TRANSPLANT
     Route: 065
  5. METHYLPREDNISOLONE [Concomitant]
     Indication: RENAL TRANSPLANT
     Route: 065
  6. TACROLIMUS [Concomitant]

REACTIONS (9)
  - BLOOD CREATININE INCREASED [None]
  - DRUG LEVEL DECREASED [None]
  - DRUG LEVEL INCREASED [None]
  - PYREXIA [None]
  - RENAL FAILURE ACUTE [None]
  - RENAL IMPAIRMENT [None]
  - RENAL TUBULAR DISORDER [None]
  - URINE OUTPUT DECREASED [None]
  - WEIGHT INCREASED [None]
